FAERS Safety Report 9120508 (Version 2)
Quarter: 2013Q2

REPORT INFORMATION
  Report Type: Spontaneous
  Country: US (occurrence: US)
  Receive Date: 20130226
  Receipt Date: 20130627
  Transmission Date: 20140414
  Serious: Yes (Death, Hospitalization, Other)
  Sender: FDA-Public Use
  Company Number: US-B.I. PHARMACEUTICALS,INC./RIDGEFIELD-2013-BI-04808BP

PATIENT
  Age: 85 Year
  Sex: Female
  Weight: 40.82 kg

DRUGS (12)
  1. PRADAXA [Suspect]
     Indication: ATRIAL FIBRILLATION
     Dosage: 300 MG
     Dates: start: 20110322, end: 20110323
  2. PRADAXA [Suspect]
     Indication: ATRIAL FLUTTER
  3. LASIX [Concomitant]
     Dosage: 20 MG
     Route: 048
  4. SYNTHROID [Concomitant]
     Dosage: 50 MCG
     Route: 048
  5. HYDROCHLOROTHIAZIDE [Concomitant]
  6. FOSAMAX [Concomitant]
     Dosage: 10 MG
     Route: 048
  7. LOPRESSOR [Concomitant]
  8. ASPIRIN [Concomitant]
  9. PLAVIX [Concomitant]
  10. SIMVASTATIN [Concomitant]
     Dosage: 80 MG
     Route: 048
     Dates: start: 2007
  11. IMDUR [Concomitant]
  12. NITRO [Concomitant]

REACTIONS (5)
  - Upper gastrointestinal haemorrhage [Fatal]
  - Lower gastrointestinal haemorrhage [Fatal]
  - Respiratory failure [Fatal]
  - Intestinal ischaemia [Fatal]
  - Myocardial infarction [Unknown]
